FAERS Safety Report 21324001 (Version 1)
Quarter: 2022Q3

REPORT INFORMATION
  Report Type: Spontaneous
  Country: US (occurrence: None)
  Receive Date: 20220910
  Receipt Date: 20220910
  Transmission Date: 20221026
  Serious: Yes (Other)
  Sender: FDA-Public Use
  Company Number: None

PATIENT
  Sex: Female

DRUGS (2)
  1. MOUNJARO [Suspect]
     Active Substance: TIRZEPATIDE
  2. MOUNJARO [Concomitant]
     Active Substance: TIRZEPATIDE
     Dates: start: 20220818

REACTIONS (4)
  - Haematochezia [None]
  - Abdominal pain [None]
  - Flatulence [None]
  - Food intolerance [None]
